FAERS Safety Report 26021806 (Version 1)
Quarter: 2025Q4

REPORT INFORMATION
  Report Type: Spontaneous
  Country: EU (occurrence: EU)
  Receive Date: 20251110
  Receipt Date: 20251110
  Transmission Date: 20260117
  Serious: Yes (Other)
  Sender: AMGEN
  Company Number: EU-AMGEN-ROUSP2025218836

PATIENT
  Age: 74 Year
  Sex: Male

DRUGS (4)
  1. KYPROLIS [Suspect]
     Active Substance: CARFILZOMIB
     Indication: Plasma cell myeloma refractory
     Dosage: 70 MILLIGRAM/SQ. METER (DAY 1,8,15 WITH PAUSE 12 DAYS)
     Route: 040
     Dates: start: 20231024, end: 202409
  2. KYPROLIS [Suspect]
     Active Substance: CARFILZOMIB
     Dosage: 70 MILLIGRAM/SQ. METER (DAY 1,8,15 WITH PAUSE 12 DAYS)
     Route: 040
     Dates: start: 202504, end: 202507
  3. KYPROLIS [Suspect]
     Active Substance: CARFILZOMIB
     Dosage: UNK ( CONTINUE THERAPY WITH CARFILZOMIB)
     Route: 040
     Dates: start: 202510
  4. DEXAMETHASONE [Concomitant]
     Active Substance: DEXAMETHASONE
     Indication: Plasma cell myeloma refractory
     Dosage: 20 MILLIGRAM (DAY 1,8,15,22)
     Route: 040
     Dates: start: 20251024

REACTIONS (2)
  - Pathological fracture [Not Recovered/Not Resolved]
  - Pain in extremity [Unknown]

NARRATIVE: CASE EVENT DATE: 20250401
